FAERS Safety Report 21394046 (Version 4)
Quarter: 2023Q2

REPORT INFORMATION
  Report Type: Spontaneous
  Country: PK (occurrence: PK)
  Receive Date: 20220930
  Receipt Date: 20230627
  Transmission Date: 20230721
  Serious: Yes (Other)
  Sender: FDA-Public Use
  Company Number: PK-PFIZER INC-PV202200072110

PATIENT
  Age: 49 Year
  Sex: Female
  Weight: 70 kg

DRUGS (13)
  1. ENBREL [Suspect]
     Active Substance: ETANERCEPT
     Indication: Rheumatoid arthritis
     Dosage: 50 MG, WEEKLY
     Route: 058
     Dates: start: 20220810, end: 20221215
  2. ENBREL [Suspect]
     Active Substance: ETANERCEPT
     Indication: Bursitis
     Dosage: UNK
     Route: 065
     Dates: end: 2023
  3. PREDNISOLONE [Suspect]
     Active Substance: PREDNISOLONE
     Indication: Product used for unknown indication
     Dosage: 5 MG, 1X/DAY (IN MORNING AFTER MEAL)
     Route: 065
  4. LEFLUNOMIDE [Suspect]
     Active Substance: LEFLUNOMIDE
     Indication: Product used for unknown indication
     Dosage: 10 MG, 1X/DAY (IN MORNING AFTER MEAL)
     Route: 065
  5. LEFLUNOMIDE [Suspect]
     Active Substance: LEFLUNOMIDE
     Dosage: 20 MG, 1X/DAY (IN MORNING AFTER MEAL)
     Route: 065
  6. FOLIC ACID [Suspect]
     Active Substance: FOLIC ACID
     Indication: Product used for unknown indication
     Dosage: 5 MILLIGRAM, QD (IN MORNING BEFORE MEAL)
     Route: 065
  7. HYDROXYCHLOROQUINE SULFATE [Suspect]
     Active Substance: HYDROXYCHLOROQUINE SULFATE
     Indication: Product used for unknown indication
     Dosage: 200 MILLIGRAM, QD (IN EVENING AFTER MEAL)
     Route: 065
  8. ETORICOXIB [Suspect]
     Active Substance: ETORICOXIB
     Indication: Pain
     Dosage: 60 MILLIGRAM, QD (IN EVENING AFTER MEAL)
     Route: 065
  9. OMEPRAZOLE SODIUM [Suspect]
     Active Substance: OMEPRAZOLE SODIUM
     Indication: Abdominal discomfort
     Dosage: 20 MILLIGRAM, QD  (IN MORNING BEFORE MEAL)
     Route: 065
  10. OSTEOCARE [Suspect]
     Active Substance: CALCIUM\CHOLECALCIFEROL\MAGNESIUM\ZINC
     Indication: Product used for unknown indication
     Dosage: 1 DOSAGE FORM, QD  (IN AFTERNOON AFTER MEAL)
     Route: 065
  11. DICLOFENAC SODIUM [Concomitant]
     Active Substance: DICLOFENAC SODIUM
     Dosage: APPLY LOCALLY, THREE TIMES A DAY
  12. KENALOG IN ORABASE [Concomitant]
     Active Substance: TRIAMCINOLONE ACETONIDE
     Dosage: APPLY LOCALLY, TWICE DAILY
  13. SURBEX Z [Concomitant]
     Dosage: 1 TABLETS, 1X/DAY

REACTIONS (13)
  - Meniscus injury [Unknown]
  - Arthralgia [Recovering/Resolving]
  - Red blood cell sedimentation rate increased [Unknown]
  - Oedema [Unknown]
  - Joint swelling [Unknown]
  - Feeling hot [Unknown]
  - Tenderness [Unknown]
  - Tenosynovitis [Unknown]
  - Nail ridging [Unknown]
  - Pain in extremity [Unknown]
  - Headache [Unknown]
  - Infection [Unknown]
  - Viral pharyngitis [Unknown]

NARRATIVE: CASE EVENT DATE: 20220915
